FAERS Safety Report 19635040 (Version 1)
Quarter: 2021Q3

REPORT INFORMATION
  Report Type: Spontaneous
  Country: GR (occurrence: GR)
  Receive Date: 20210730
  Receipt Date: 20210730
  Transmission Date: 20211014
  Serious: Yes (Other)
  Sender: FDA-Public Use
  Company Number: GR-PFIZER INC-202100913571

PATIENT
  Age: 15 Year
  Sex: Male

DRUGS (4)
  1. FLUOROURACIL. [Suspect]
     Active Substance: FLUOROURACIL
     Indication: NASOPHARYNGEAL CANCER
     Dosage: UNK, CYCLIC (EVERY 28 DAYS)
  2. ADRIBLASTINA [Suspect]
     Active Substance: DOXORUBICIN HYDROCHLORIDE
     Indication: NASOPHARYNGEAL CANCER
     Dosage: UNK, CYCLIC (EVERY 28 DAYS)
  3. CYCLOPHOSPHAMIDE. [Suspect]
     Active Substance: CYCLOPHOSPHAMIDE
     Indication: NASOPHARYNGEAL CANCER
     Dosage: UNK, CYCLIC (EVERY 28 DAYS)
  4. VINCRISTINE SULFATE. [Suspect]
     Active Substance: VINCRISTINE SULFATE
     Indication: NASOPHARYNGEAL CANCER
     Dosage: UNK, CYCLIC (EVERY 28 DAYS)

REACTIONS (3)
  - Growth retardation [Unknown]
  - Microgenia [Unknown]
  - Dysmorphism [Unknown]
